FAERS Safety Report 7064837-5 (Version None)
Quarter: 2010Q4

REPORT INFORMATION
  Report Type: 
  Country: None (occurrence: None)
  Receive Date: 20101022
  Receipt Date: 20101022
  Transmission Date: 20110411
  Serious: Yes (Other)
  Sender: FDA-Public Use
  Company Number: None

PATIENT
  Sex: Male

DRUGS (1)
  1. OMNIPAQUE 350 [Suspect]

REACTIONS (3)
  - CONTRAST MEDIA REACTION [None]
  - PRURITUS [None]
  - URTICARIA [None]
